FAERS Safety Report 16018460 (Version 5)
Quarter: 2019Q3

REPORT INFORMATION
  Report Type: Spontaneous
  Country: US (occurrence: US)
  Receive Date: 20190228
  Receipt Date: 20190925
  Transmission Date: 20191004
  Serious: Yes (Death, Other)
  Sender: FDA-Public Use
  Company Number: US-ASTRAZENECA-2018SF26195

PATIENT
  Sex: Female

DRUGS (4)
  1. PRILOSEC [Suspect]
     Active Substance: OMEPRAZOLE MAGNESIUM
     Indication: DYSPEPSIA
     Route: 048
  2. PRILOSEC OTC [Suspect]
     Active Substance: OMEPRAZOLE MAGNESIUM
     Indication: DYSPEPSIA
     Route: 048
     Dates: start: 20150301, end: 20160831
  3. PRILOSEC OTC [Suspect]
     Active Substance: OMEPRAZOLE MAGNESIUM
     Indication: DYSPEPSIA
     Route: 048
  4. PRILOSEC [Suspect]
     Active Substance: OMEPRAZOLE MAGNESIUM
     Indication: DYSPEPSIA
     Route: 048
     Dates: start: 20150301, end: 20160831

REACTIONS (2)
  - Tubulointerstitial nephritis [Recovered/Resolved]
  - Renal injury [Unknown]
